FAERS Safety Report 6164906-8 (Version None)
Quarter: 2009Q2

REPORT INFORMATION
  Report Type: 
  Country: None (occurrence: None)
  Receive Date: 20090423
  Receipt Date: 20090414
  Transmission Date: 20091009
  Serious: Yes (Other)
  Sender: FDA-Public Use
  Company Number: US-BAYER-200835194NA

PATIENT
  Age: 25 Year
  Sex: Female
  Weight: 61 kg

DRUGS (1)
  1. MIRENA [Suspect]
     Indication: CONTRACEPTION
     Dosage: CONTINUOUS
     Route: 015
     Dates: start: 20070301, end: 20081009

REACTIONS (17)
  - ABDOMINAL PAIN [None]
  - ABDOMINAL PAIN LOWER [None]
  - AMENORRHOEA [None]
  - BACK PAIN [None]
  - DIZZINESS [None]
  - DYSPNOEA [None]
  - FATIGUE [None]
  - FEELING ABNORMAL [None]
  - GENERAL SYMPTOM [None]
  - HEADACHE [None]
  - HEART RATE INCREASED [None]
  - LYMPHADENOPATHY [None]
  - NAUSEA [None]
  - TENDONITIS [None]
  - UTERINE ENLARGEMENT [None]
  - UTERINE PAIN [None]
  - UTERINE RUPTURE [None]
